FAERS Safety Report 10049831 (Version 1)
Quarter: 2014Q2

REPORT INFORMATION
  Report Type: Spontaneous
  Country: IN (occurrence: IN)
  Receive Date: 20140401
  Receipt Date: 20140401
  Transmission Date: 20141212
  Serious: Yes (Hospitalization)
  Sender: FDA-Public Use
  Company Number: IN-MYLANLABS-2014S1006598

PATIENT
  Age: 27 Year
  Sex: Female

DRUGS (5)
  1. PHENYTOIN [Suspect]
     Indication: CONVULSION PROPHYLAXIS
     Dosage: 100MG GIVEN AT MORE THAN 50 MG/MIN
     Route: 042
  2. PHENYTOIN [Interacting]
     Indication: CONVULSION PROPHYLAXIS
     Dosage: 300MG DAILY
     Route: 048
  3. CEFTRIAXONE [Interacting]
     Route: 065
  4. DICLOFENAC [Interacting]
     Route: 065
  5. ALPRAZOLAM [Concomitant]
     Dosage: 0.5MG TAKEN TWICE; NIGHT PRIOR TO SURGERY AND SURGERY MORNING
     Route: 065

REACTIONS (2)
  - Drug interaction [Recovered/Resolved]
  - Bradyarrhythmia [Recovered/Resolved]
